FAERS Safety Report 7107117-1 (Version None)
Quarter: 2010Q4

REPORT INFORMATION
  Report Type: 
  Country: None (occurrence: None)
  Receive Date: 20101116
  Receipt Date: 20101012
  Transmission Date: 20110411
  Serious: No
  Sender: FDA-Public Use
  Company Number: US-ABBOTT-10P-163-0677456-00

PATIENT
  Sex: Male
  Weight: 93.07 kg

DRUGS (6)
  1. SIMCOR [Suspect]
     Indication: HYPERLIPIDAEMIA
     Dates: start: 20100927
  2. YELLOW SWAN ENERGY PILL [Concomitant]
     Indication: PRODUCT USED FOR UNKNOWN INDICATION
  3. UNKNOWN SINUS MEDICATION [Concomitant]
     Indication: PRODUCT USED FOR UNKNOWN INDICATION
  4. UNKNOWN MUSCLE RELAXANT [Concomitant]
     Indication: PRODUCT USED FOR UNKNOWN INDICATION
  5. UNKNOWN ANTIINFLAMATORY [Concomitant]
     Indication: ANTIINFLAMMATORY THERAPY
  6. UNKNOWN STOMACH ACID REDUCER [Concomitant]
     Indication: DYSPEPSIA

REACTIONS (3)
  - FLUSHING [None]
  - OEDEMA PERIPHERAL [None]
  - PAIN IN EXTREMITY [None]
